FAERS Safety Report 8159049-8 (Version None)
Quarter: 2012Q1

REPORT INFORMATION
  Report Type: 
  Country: None (occurrence: None)
  Receive Date: 20120223
  Receipt Date: 20120214
  Transmission Date: 20120608
  Serious: Yes (Hospitalization)
  Sender: FDA-Public Use
  Company Number: US-SANOFI-AVENTIS-2012SA001398

PATIENT
  Age: 65 Year
  Sex: Male
  Weight: 103.4 kg

DRUGS (16)
  1. OXALIPLATIN [Suspect]
     Dosage: DAY 1 EVERY 14 DAYS
     Route: 041
     Dates: start: 20111103, end: 20111103
  2. LAMOTRIGINE [Concomitant]
     Dates: start: 20080115
  3. OXALIPLATIN [Suspect]
     Dosage: DAY 1 EVERY 14 DAYS
     Route: 041
     Dates: start: 20111219, end: 20111219
  4. FLUOROURACIL [Suspect]
     Dosage: DAY 1 EVERY 14 DAYS
     Route: 040
     Dates: start: 20111103, end: 20111103
  5. ATENOLOL [Concomitant]
     Dates: start: 20080115
  6. SIMVASTATIN [Concomitant]
     Dates: start: 20080115
  7. FLUOROURACIL [Suspect]
     Dosage: DAY 1 EVERY 14 DAYS
     Route: 040
     Dates: start: 20111219, end: 20111219
  8. LEUCOVORIN CALCIUM [Suspect]
     Dosage: DAY 1 EVERY 14 DAYS
     Route: 042
     Dates: start: 20111103, end: 20111103
  9. HYDROXYZINE [Concomitant]
     Dates: start: 20080115
  10. BLINDED THERAPY [Suspect]
     Dosage: DAY 1 EVERY 14 DAYS
     Route: 042
     Dates: start: 20111103, end: 20111103
  11. VITAMINS NOS [Concomitant]
     Dates: start: 20080115
  12. CHLORTHALIDONE [Concomitant]
     Dates: start: 20080115
  13. BLINDED THERAPY [Suspect]
     Dosage: DAY 1 EVERY 14 DAYS
     Route: 042
     Dates: start: 20111219, end: 20111219
  14. LEUCOVORIN CALCIUM [Suspect]
     Dosage: DAY 1 EVERY 14 DAYS
     Route: 042
     Dates: start: 20111219, end: 20111219
  15. FLUOROURACIL [Suspect]
     Dosage: 2400 MG/M2 OVER 46 TO 48 HOURS DAY 1 EVERY 14 DAYS
     Route: 041
     Dates: start: 20111103, end: 20111105
  16. FLUOROURACIL [Suspect]
     Dosage: 1900 MG/M2 OVER 46 TO 48 HOURS DAY 1 EVERY 14 DAYS
     Route: 041
     Dates: start: 20111219, end: 20111221

REACTIONS (1)
  - ASTHMA [None]
